FAERS Safety Report 9338782 (Version 1)
Quarter: 2013Q2

REPORT INFORMATION
  Report Type: Spontaneous
  Country: US (occurrence: None)
  Receive Date: 20130605
  Receipt Date: 20130605
  Transmission Date: 20140414
  Serious: Yes (Hospitalization)
  Sender: FDA-Public Use
  Company Number: None

PATIENT
  Age: 5 Month
  Sex: Male
  Weight: 7.48 kg

DRUGS (2)
  1. FLORASTOR KIDS? [Suspect]
     Dosage: 1 PACKET-250 MG 1/DAY
     Route: 048
     Dates: start: 20130301, end: 20130603
  2. FLORASTOR KIDS? [Suspect]
     Indication: PROPHYLAXIS
     Dosage: 1 PACKET-250 MG 1/DAY
     Route: 048
     Dates: start: 20130301, end: 20130603

REACTIONS (4)
  - Vomiting [None]
  - Lethargy [None]
  - Diarrhoea [None]
  - Product quality issue [None]
